FAERS Safety Report 6960783 (Version 3)
Quarter: 2014Q3

REPORT INFORMATION
  Report Type: Spontaneous
  Country: US (occurrence: None)
  Receive Date: 20090326
  Receipt Date: 20140723
  Transmission Date: 20150326
  Serious: Yes (Death, Hospitalization, Other)
  Sender: FDA-Public Use
  Company Number: 2009S1002480

PATIENT
  Age: 69 Year
  Sex: Male
  Weight: 99 kg

DRUGS (5)
  1. NORVASC [Concomitant]
     Active Substance: AMLODIPINE BESYLATE
  2. FLEET NOS [Suspect]
     Active Substance: BISACODYL OR GLYCERIN OR MINERAL OIL OR SODIUM PHOSPHATE, DIBASIC\SODIUM PHOSPHATE, MONOBASIC
     Indication: COLONOSCOPY
     Dosage: RECTAL
  3. VYTORIN (SIMVASTATIN, EZETIMIBE) [Concomitant]
  4. AVANDIA (ROSIGLITAZONE MALEATE) [Concomitant]
  5. PHOSPHO-SODA [Suspect]
     Active Substance: SODIUM PHOSPHATE, DIBASIC\SODIUM PHOSPHATE, MONOBASIC
     Indication: COLONOSCOPY
     Route: 048
     Dates: start: 20080406, end: 20080406

REACTIONS (13)
  - Dialysis [None]
  - Weight decreased [None]
  - Abdominal distension [None]
  - Hyperhidrosis [None]
  - Gastroenteritis [None]
  - Renal failure chronic [None]
  - Pain [None]
  - Asthenia [None]
  - Constipation [None]
  - Hot flush [None]
  - Cystitis [None]
  - Renal failure acute [None]
  - Nausea [None]

NARRATIVE: CASE EVENT DATE: 20080406
